FAERS Safety Report 6793427-4 (Version None)
Quarter: 2010Q2

REPORT INFORMATION
  Report Type: 
  Country: None (occurrence: None)
  Receive Date: 20100624
  Receipt Date: 20100225
  Transmission Date: 20101027
  Serious: Yes (Life-Threatening, Hospitalization, Other)
  Sender: FDA-Public Use
  Company Number: US-MYLANLABS-2010S1003280

PATIENT
  Age: 64 Year
  Sex: Female

DRUGS (7)
  1. CLOZAPINE [Suspect]
     Indication: SCHIZOPHRENIA
     Route: 048
     Dates: start: 20100129, end: 20100219
  2. COGENTIN [Concomitant]
  3. TRAZODONE HYDROCHLORIDE [Concomitant]
  4. BENADRYL [Concomitant]
  5. CALCIUM CARBONATE [Concomitant]
  6. ATENOLOL [Concomitant]
  7. TYLENOL [Concomitant]

REACTIONS (2)
  - AGRANULOCYTOSIS [None]
  - LEUKOPENIA [None]
